FAERS Safety Report 21348738 (Version 1)
Quarter: 2022Q3

REPORT INFORMATION
  Report Type: Spontaneous
  Country: JP (occurrence: JP)
  Receive Date: 20220919
  Receipt Date: 20220919
  Transmission Date: 20221026
  Serious: Yes (Other)
  Sender: FDA-Public Use
  Company Number: JP-CHUGAI-2022035712

PATIENT
  Age: 38 Year
  Sex: Male

DRUGS (1)
  1. AVASTIN [Suspect]
     Active Substance: BEVACIZUMAB
     Indication: Malignant glioma
     Dosage: 1.8 UNK
     Route: 041
     Dates: end: 20220902

REACTIONS (2)
  - Dyspnoea [Unknown]
  - Metastases to central nervous system [Unknown]
